FAERS Safety Report 12396561 (Version 2)
Quarter: 2016Q3

REPORT INFORMATION
  Report Type: Spontaneous
  Country: US (occurrence: US)
  Receive Date: 20160524
  Receipt Date: 20160905
  Transmission Date: 20161109
  Serious: No
  Sender: FDA-Public Use
  Company Number: US-ASTRAZENECA-2016SE40153

PATIENT
  Sex: Female

DRUGS (1)
  1. BYDUREON [Suspect]
     Active Substance: EXENATIDE
     Indication: TYPE 2 DIABETES MELLITUS
     Route: 058
     Dates: start: 20150831, end: 20160502

REACTIONS (5)
  - Injection site pain [Unknown]
  - Drug dose omission [Unknown]
  - Product quality issue [Unknown]
  - Device malfunction [Recovered/Resolved]
  - Injection site haemorrhage [Unknown]
